FAERS Safety Report 18884649 (Version 3)
Quarter: 2021Q1

REPORT INFORMATION
  Report Type: Spontaneous
  Country: JP (occurrence: JP)
  Receive Date: 20210212
  Receipt Date: 20210326
  Transmission Date: 20210420
  Serious: Yes (Other)
  Sender: FDA-Public Use
  Company Number: JP-MYLANLABS-2021M1007999

PATIENT
  Age: 60 Year
  Sex: Male

DRUGS (5)
  1. PEMBROLIZUMAB. [Suspect]
     Active Substance: PEMBROLIZUMAB
     Indication: LUNG CARCINOMA CELL TYPE UNSPECIFIED RECURRENT
     Dosage: 200 MG/BODY
     Route: 065
  2. CARBOPLATIN INJ. 50MG ^NK^ [Suspect]
     Active Substance: CARBOPLATIN
     Indication: LUNG CARCINOMA CELL TYPE UNSPECIFIED RECURRENT
     Dosage: AREA UNDER THE CONCENTRATION?TIME CURVE: 5
     Route: 065
  3. PREDONINE [Concomitant]
     Active Substance: PREDNISOLONE
     Indication: VASCULITIS
     Dosage: 60 MILLIGRAM, QD, TAPERED
     Route: 048
  4. PREDONINE [Concomitant]
     Active Substance: PREDNISOLONE
     Indication: IMMUNE-MEDIATED ADVERSE REACTION
     Dosage: 55 MILLIGRAM, QD
     Route: 048
  5. PEMETREXED. [Suspect]
     Active Substance: PEMETREXED
     Indication: LUNG CARCINOMA CELL TYPE UNSPECIFIED RECURRENT
     Route: 065

REACTIONS (2)
  - Immune-mediated adverse reaction [Recovering/Resolving]
  - Vasculitis [Recovering/Resolving]
